FAERS Safety Report 13799930 (Version 1)
Quarter: 2017Q3

REPORT INFORMATION
  Report Type: Spontaneous
  Country: US (occurrence: US)
  Receive Date: 20170727
  Receipt Date: 20170727
  Transmission Date: 20171127
  Serious: No
  Sender: FDA-Public Use
  Company Number: US-JNJFOC-20170524744

PATIENT
  Sex: Female
  Weight: 68.04 kg

DRUGS (6)
  1. WOMENS ROGAINE UNSCENTED [Suspect]
     Active Substance: MINOXIDIL
     Indication: ALOPECIA
     Route: 061
  2. IRON [Concomitant]
     Active Substance: IRON
     Indication: IRON DEFICIENCY
     Dosage: 1 MONTH
     Route: 065
  3. SUPER ENZYME [Concomitant]
     Indication: GENERAL PHYSICAL CONDITION
     Dosage: 3 MONTHS
     Route: 065
  4. VITAMIN D WITH OMEGA 3 [Concomitant]
     Indication: ROUTINE HEALTH MAINTENANCE
     Dosage: 2 MONTHS
     Route: 065
  5. WOMENS ROGAINE UNSCENTED [Suspect]
     Active Substance: MINOXIDIL
     Indication: ALOPECIA
     Dosage: A PEA SIZE
     Route: 061
     Dates: start: 201602
  6. GLUTAMINE [Concomitant]
     Active Substance: GLUTAMINE
     Indication: GENERAL PHYSICAL CONDITION
     Dosage: 3 MONTHS
     Route: 065

REACTIONS (4)
  - Drug ineffective [Unknown]
  - Wrong technique in product usage process [Unknown]
  - Product quality issue [Unknown]
  - Incorrect dose administered [Unknown]
